FAERS Safety Report 5836330-6 (Version None)
Quarter: 2008Q3

REPORT INFORMATION
  Report Type: 
  Country: None (occurrence: None)
  Receive Date: 20080805
  Receipt Date: 20080725
  Transmission Date: 20090109
  Serious: Yes (Hospitalization, Other)
  Sender: FDA-Public Use
  Company Number: 2008AL003976

PATIENT
  Age: 59 Year
  Sex: Female
  Weight: 68.4932 kg

DRUGS (1)
  1. DIGOXIN [Suspect]
     Indication: ATRIAL FIBRILLATION
     Dosage: 0.25MG, QD, PO
     Route: 048
     Dates: start: 20070101, end: 20080501

REACTIONS (3)
  - CHEST PAIN [None]
  - DIABETES MELLITUS [None]
  - FATIGUE [None]
